FAERS Safety Report 7212402-9 (Version None)
Quarter: 2011Q1

REPORT INFORMATION
  Report Type: 
  Country: None (occurrence: None)
  Receive Date: 20110106
  Receipt Date: 20101224
  Transmission Date: 20110831
  Serious: Yes (Other)
  Sender: FDA-Public Use
  Company Number: JP-PFIZER INC-2010175024

PATIENT
  Age: 75 Year
  Sex: Female

DRUGS (4)
  1. LYRICA [Suspect]
     Indication: SCIATICA
     Dosage: UNK
     Route: 048
     Dates: start: 20101203
  2. ASPIRIN [Concomitant]
     Indication: GUILLAIN-BARRE SYNDROME
  3. GABAPENTIN [Suspect]
  4. LIPITOR [Suspect]

REACTIONS (16)
  - BONE PAIN [None]
  - THROAT IRRITATION [None]
  - MUSCLE SPASMS [None]
  - SOMNOLENCE [None]
  - WEIGHT INCREASED [None]
  - HEADACHE [None]
  - DYSPNOEA [None]
  - DIPLOPIA [None]
  - BALANCE DISORDER [None]
  - DIZZINESS [None]
  - VISUAL ACUITY REDUCED [None]
  - CHEST DISCOMFORT [None]
  - ABDOMINAL DISTENSION [None]
  - DISCOMFORT [None]
  - MYALGIA [None]
  - PAIN IN EXTREMITY [None]
